FAERS Safety Report 6115189-6 (Version None)
Quarter: 2009Q1

REPORT INFORMATION
  Report Type: 
  Country: None (occurrence: None)
  Receive Date: 20090313
  Receipt Date: 20090304
  Transmission Date: 20090719
  Serious: Yes (Life-Threatening, Other)
  Sender: FDA-Public Use
  Company Number: US-JNJFOC-20090101859

PATIENT
  Sex: Female

DRUGS (3)
  1. REMICADE [Suspect]
     Indication: PSORIASIS
     Route: 042
  2. DACROMIS [Concomitant]
     Indication: PSORIASIS
     Route: 061
  3. PROGRAF [Concomitant]
     Indication: PSORIASIS
     Route: 048

REACTIONS (1)
  - NON-SMALL CELL LUNG CANCER STAGE IV [None]
